FAERS Safety Report 8127426-7 (Version None)
Quarter: 2011Q4

REPORT INFORMATION
  Report Type: 
  Country: None (occurrence: None)
  Receive Date: 20111227
  Receipt Date: 20111110
  Transmission Date: 20120403
  Serious: No
  Sender: FDA-Public Use
  Company Number: PHEH2011US07979

PATIENT
  Age: 47 Year
  Sex: Male

DRUGS (3)
  1. GILENYA [Suspect]
     Indication: RELAPSING-REMITTING MULTIPLE SCLEROSIS
     Dosage: 0.5 MG, QD, ORAL
     Route: 048
     Dates: start: 20110926, end: 20111020
  2. NUVIGIL (ARMODAFINIL) 09/--/2010 TO UNK [Concomitant]
  3. BACLOFEN (BACLOFEN) 08/--/2010 TO UNK [Concomitant]

REACTIONS (5)
  - GASTROENTERITIS [None]
  - DIARRHOEA [None]
  - FATIGUE [None]
  - HEADACHE [None]
  - DECREASED APPETITE [None]
